FAERS Safety Report 4435272-0 (Version None)
Quarter: 2004Q3

REPORT INFORMATION
  Report Type: 
  Country: None (occurrence: None)
  Receive Date: 20040826
  Receipt Date: 20040826
  Transmission Date: 20050211
  Serious: Yes (Other)
  Sender: FDA-Public Use
  Company Number: None

PATIENT
  Age: 49 Year
  Sex: Female
  Weight: 63.5036 kg

DRUGS (1)
  1. EFFEXOR XR [Suspect]
     Indication: PREMENSTRUAL SYNDROME
     Dosage: 37.5 MG DAILY ORAL
     Route: 048
     Dates: start: 20020101, end: 20040819

REACTIONS (7)
  - ASTHENIA [None]
  - CRYING [None]
  - DIZZINESS [None]
  - FEELING ABNORMAL [None]
  - HOT FLUSH [None]
  - MALAISE [None]
  - NAUSEA [None]
